FAERS Safety Report 17040656 (Version 2)
Quarter: 2019Q4

REPORT INFORMATION
  Report Type: Spontaneous
  Country: JP (occurrence: JP)
  Receive Date: 20191117
  Receipt Date: 20191125
  Transmission Date: 20200122
  Serious: Yes (Hospitalization, Other)
  Sender: FDA-Public Use
  Company Number: JP-BRISTOL-MYERS SQUIBB COMPANY-BMS-2019-045540

PATIENT
  Age: 72 Year
  Sex: Male

DRUGS (2)
  1. YERVOY [Suspect]
     Active Substance: IPILIMUMAB
     Indication: RENAL CELL CARCINOMA
     Dosage: 1 MILLIGRAM/KILOGRAM
     Route: 041
     Dates: start: 20190326, end: 20190521
  2. OPDIVO [Suspect]
     Active Substance: NIVOLUMAB
     Indication: RENAL CELL CARCINOMA
     Dosage: 240 MILLIGRAM, Q2MO
     Route: 041
     Dates: start: 20190326

REACTIONS (5)
  - Lung disorder [Unknown]
  - Adrenal insufficiency [Unknown]
  - Rash [Recovering/Resolving]
  - Renal disorder [Not Recovered/Not Resolved]
  - Pyrexia [Recovering/Resolving]

NARRATIVE: CASE EVENT DATE: 20190416
